FAERS Safety Report 14925681 (Version 1)
Quarter: 2018Q2

REPORT INFORMATION
  Report Type: Spontaneous
  Country: US (occurrence: US)
  Receive Date: 20180522
  Receipt Date: 20180522
  Transmission Date: 20180711
  Serious: No
  Sender: FDA-Public Use
  Company Number: US-AMAG PHARMACEUTICALS, INC.-AMAG201801303

PATIENT

DRUGS (3)
  1. YOUTHFUL YOU DHEA [Concomitant]
     Indication: MENOPAUSE
     Dosage: 5 MG, QD
     Route: 048
  2. INTRAROSA [Suspect]
     Active Substance: PRASTERONE
     Indication: DYSPAREUNIA
     Dosage: 6.5 UNK, QHS
     Route: 067
     Dates: start: 2017, end: 20180317
  3. PROGESTERON [Concomitant]
     Active Substance: PROGESTERONE
     Indication: MENOPAUSE
     Dosage: UNK UNK, QHS
     Route: 061
     Dates: end: 20180317

REACTIONS (2)
  - Rash [Not Recovered/Not Resolved]
  - Pruritus generalised [Not Recovered/Not Resolved]
